FAERS Safety Report 17773329 (Version 1)
Quarter: 2020Q2

REPORT INFORMATION
  Report Type: Spontaneous
  Country: GR (occurrence: GR)
  Receive Date: 20200513
  Receipt Date: 20200513
  Transmission Date: 20200714
  Serious: Yes (Death, Life-Threatening, Hospitalization, Other)
  Sender: FDA-Public Use
  Company Number: GR-MICRO LABS LIMITED-ML2020-01523

PATIENT
  Age: 5 Year
  Sex: Male

DRUGS (3)
  1. CLINDAMYCIN. [Suspect]
     Active Substance: CLINDAMYCIN
     Indication: ACUTE RESPIRATORY DISTRESS SYNDROME
     Dosage: 10MG/KG FOUR TIMES PER DAY
  2. COTRIMOXAZOLE [Suspect]
     Active Substance: SULFAMETHOXAZOLE\TRIMETHOPRIM
     Indication: ACUTE RESPIRATORY DISTRESS SYNDROME
  3. PYRIMETHAMINE [Suspect]
     Active Substance: PYRIMETHAMINE
     Indication: ACUTE RESPIRATORY DISTRESS SYNDROME
     Dosage: (2MG/KG FOR 2 DAYS, 1MG/KG THEREAFTER)

REACTIONS (1)
  - Drug ineffective [Fatal]
